FAERS Safety Report 6971351-1 (Version None)
Quarter: 2010Q3

REPORT INFORMATION
  Report Type: 
  Country: None (occurrence: None)
  Receive Date: 20100908
  Receipt Date: 20100831
  Transmission Date: 20110219
  Serious: Yes (Other)
  Sender: FDA-Public Use
  Company Number: PHHY2010CA58350

PATIENT
  Sex: Female

DRUGS (2)
  1. FEMARA [Suspect]
     Indication: BREAST CANCER
     Dosage: 4 MG, 06 MONTHS
     Route: 042
     Dates: start: 20100304
  2. ZOMETA [Suspect]
     Dosage: UNK
     Dates: start: 20100101

REACTIONS (2)
  - TOOTH INFECTION [None]
  - VISION BLURRED [None]
